FAERS Safety Report 14324395 (Version 1)
Quarter: 2017Q4

REPORT INFORMATION
  Report Type: Spontaneous
  Country: US (occurrence: US)
  Receive Date: 20171222
  Receipt Date: 20171222
  Transmission Date: 20180321
  Serious: No
  Sender: FDA-Public Use
  Company Number: None

PATIENT
  Age: 73 Year
  Sex: Male

DRUGS (1)
  1. CABOMETYX [Suspect]
     Active Substance: CABOZANTINIB S-MALATE

REACTIONS (6)
  - Nasal discomfort [None]
  - Fatigue [None]
  - Gingival pain [None]
  - Weight decreased [None]
  - Hypotension [None]
  - Rhinorrhoea [None]

NARRATIVE: CASE EVENT DATE: 20171222
